FAERS Safety Report 14775100 (Version 1)
Quarter: 2018Q2

REPORT INFORMATION
  Report Type: Spontaneous
  Country: US (occurrence: US)
  Receive Date: 20180418
  Receipt Date: 20180418
  Transmission Date: 20180711
  Serious: No
  Sender: FDA-Public Use
  Company Number: US-PERRIGO-18US001976

PATIENT
  Sex: Female

DRUGS (3)
  1. TERCONAZOLE. [Suspect]
     Active Substance: TERCONAZOLE
     Indication: VULVOVAGINAL PRURITUS
  2. TERCONAZOLE. [Suspect]
     Active Substance: TERCONAZOLE
     Indication: VAGINAL DISCHARGE
     Dosage: UNKNOWN, SINGLE
     Route: 067
     Dates: start: 20180209, end: 20180209
  3. TERCONAZOLE. [Suspect]
     Active Substance: TERCONAZOLE
     Indication: VULVOVAGINAL MYCOTIC INFECTION
     Dosage: 80 MG, QHS
     Route: 067
     Dates: start: 20180207, end: 20180208

REACTIONS (2)
  - Drug ineffective [Unknown]
  - Underdose [Recovered/Resolved]

NARRATIVE: CASE EVENT DATE: 20180207
